FAERS Safety Report 14303755 (Version 1)
Quarter: 2017Q4

REPORT INFORMATION
  Report Type: Report from Study
  Country: BR (occurrence: BR)
  Receive Date: 20171219
  Receipt Date: 20171219
  Transmission Date: 20180321
  Serious: Yes (Other)
  Sender: FDA-Public Use
  Company Number: BR-EMD SERONO-E2B_90001523

PATIENT
  Sex: Female

DRUGS (1)
  1. REBIF [Suspect]
     Active Substance: INTERFERON BETA-1A
     Indication: MULTIPLE SCLEROSIS
     Route: 058
     Dates: start: 20131009

REACTIONS (3)
  - Menorrhagia [Recovered/Resolved]
  - Influenza like illness [Recovered/Resolved]
  - Delirium febrile [Recovered/Resolved]

NARRATIVE: CASE EVENT DATE: 2017
